FAERS Safety Report 10594490 (Version 2)
Quarter: 2014Q4

REPORT INFORMATION
  Report Type: Spontaneous
  Country: DE (occurrence: DE)
  Receive Date: 20141119
  Receipt Date: 20141127
  Transmission Date: 20150529
  Serious: Yes (Hospitalization, Disabling)
  Sender: FDA-Public Use
  Company Number: GXKR2014DE004238

PATIENT
  Age: 30 Year
  Sex: Female
  Weight: 150 kg

DRUGS (2)
  1. MONA HEXAL [Suspect]
     Active Substance: CHLORMADINONE ACETATE\ETHINYL ESTRADIOL
     Dosage: 1 DF, QD
     Route: 048
     Dates: start: 2000, end: 20141020
  2. VITAMIN B12 [Concomitant]
     Active Substance: CYANOCOBALAMIN

REACTIONS (5)
  - Vision blurred [Unknown]
  - Visual acuity reduced [Recovering/Resolving]
  - Optic neuritis [Recovering/Resolving]
  - Eye pain [Unknown]
  - Visual impairment [Unknown]

NARRATIVE: CASE EVENT DATE: 20140812
